FAERS Safety Report 5134910-7 (Version None)
Quarter: 2006Q4

REPORT INFORMATION
  Report Type: 
  Country: None (occurrence: None)
  Receive Date: 20061019
  Receipt Date: 20061003
  Transmission Date: 20070319
  Serious: Yes (Other)
  Sender: FDA-Public Use
  Company Number: US200608003796

PATIENT
  Sex: Female

DRUGS (4)
  1. CYMBALTA [Suspect]
     Indication: MANIA
     Dosage: 60 MG, DAILY (1/D)
     Dates: start: 20050818, end: 20051201
  2. OXAZEPAM [Concomitant]
  3. AMITRIPTYLINE HCL [Concomitant]
  4. METHADONE HCL [Concomitant]

REACTIONS (3)
  - ALCOHOLIC LIVER DISEASE [None]
  - HEPATIC CIRRHOSIS [None]
  - HEPATIC FAILURE [None]
